FAERS Safety Report 4692366-2 (Version None)
Quarter: 2005Q2

REPORT INFORMATION
  Report Type: 
  Country: None (occurrence: None)
  Receive Date: 20050615
  Receipt Date: 20050601
  Transmission Date: 20051028
  Serious: Yes (Death, Hospitalization)
  Sender: FDA-Public Use
  Company Number: FR_050606550

PATIENT
  Age: 25 Year
  Sex: Male

DRUGS (5)
  1. ZYPREXA [Suspect]
     Dosage: 10 MG/2 DAY
     Dates: start: 20041104, end: 20050415
  2. TEGRETOL [Concomitant]
  3. PARKINANE LP (TRIHEXYPHENIDYL HYDROCHLORIDE) [Concomitant]
  4. LOXAPINE SUCCINATE [Concomitant]
  5. CLONAZEPAM [Concomitant]

REACTIONS (8)
  - ACUTE RESPIRATORY DISTRESS SYNDROME [None]
  - DIABETIC HYPEROSMOLAR COMA [None]
  - DIABETIC KETOACIDOTIC HYPERGLYCAEMIC COMA [None]
  - HAEMODYNAMIC INSTABILITY [None]
  - LUNG DISORDER [None]
  - METABOLIC ACIDOSIS [None]
  - NERVOUS SYSTEM DISORDER [None]
  - RENAL FAILURE [None]
